FAERS Safety Report 24043539 (Version 2)
Quarter: 2024Q3

REPORT INFORMATION
  Report Type: Spontaneous
  Country: US (occurrence: US)
  Receive Date: 20240703
  Receipt Date: 20240924
  Transmission Date: 20241017
  Serious: No
  Sender: SANDOZ
  Company Number: US-002147023-NVSC2023US153561

PATIENT
  Sex: Female

DRUGS (1)
  1. ESTRADIOL [Suspect]
     Active Substance: ESTRADIOL
     Indication: Product used for unknown indication
     Dosage: UNK (STRENGTH: 5, 2X A WEEK)
     Route: 065

REACTIONS (5)
  - Hot flush [Unknown]
  - Illness [Unknown]
  - Sleep disorder [Unknown]
  - Drug ineffective [Unknown]
  - Product quality issue [Unknown]
